FAERS Safety Report 7807061-8 (Version None)
Quarter: 2011Q4

REPORT INFORMATION
  Report Type: 
  Country: None (occurrence: None)
  Receive Date: 20111011
  Receipt Date: 20110929
  Transmission Date: 20120403
  Serious: Yes (Hospitalization)
  Sender: FDA-Public Use
  Company Number: PHHO2011JP13859

PATIENT
  Sex: Male
  Weight: 63 kg

DRUGS (12)
  1. SIGMART [Concomitant]
     Indication: VASODILATION PROCEDURE
     Dosage: 15 MG, UNK
     Route: 048
     Dates: start: 20100326
  2. LENDORMIN [Concomitant]
     Indication: INSOMNIA
     Dosage: 0.25 MG, UNK
     Route: 048
     Dates: start: 20080813
  3. ASPIRIN [Suspect]
     Indication: THROMBOSIS PROPHYLAXIS
     Dosage: 100 MG, DAILY
     Route: 048
     Dates: start: 20100325
  4. CARVEDILOL [Concomitant]
     Indication: CARDIAC FAILURE
     Dosage: 10 MG, UNK
     Route: 048
     Dates: start: 20100326
  5. ENALAPRIL MALEATE [Concomitant]
     Indication: HYPERTENSION
     Dosage: 2.5 MG, UNK
     Route: 048
     Dates: start: 20100325, end: 20110805
  6. NO TREATMENT RECEIVED [Suspect]
     Indication: HYPERTENSION
     Dosage: NO TREATMENT
  7. ENALAPRIL MALEATE [Concomitant]
     Dosage: 5 MG, UNK
     Route: 048
     Dates: start: 20110806
  8. RABEPRAZOLE SODIUM [Concomitant]
     Indication: HYPERCHLORHYDRIA
     Dosage: 10 MG, UNK
     Route: 048
  9. LIVALO [Concomitant]
     Indication: HYPERLIPIDAEMIA
     Dosage: 1 MG, UNK
     Route: 048
     Dates: start: 20100325
  10. WARFARIN SODIUM [Suspect]
     Dosage: 2.5 MG, DAILY
     Dates: start: 20110826
  11. WARFARIN SODIUM [Suspect]
     Indication: THROMBOSIS PROPHYLAXIS
     Dosage: 2.5 MG, DAILY
     Route: 048
     Dates: start: 20100915, end: 20110804
  12. WARFARIN SODIUM [Suspect]
     Dosage: 3 MG, DAILY
     Dates: start: 20110901

REACTIONS (1)
  - SUBDURAL HAEMATOMA [None]
